FAERS Safety Report 25180168 (Version 1)
Quarter: 2025Q2

REPORT INFORMATION
  Report Type: Spontaneous
  Country: US (occurrence: None)
  Receive Date: 20250409
  Receipt Date: 20250409
  Transmission Date: 20250717
  Serious: Yes (Hospitalization)
  Sender: FDA-CTU
  Company Number: None

PATIENT
  Age: 77 Year
  Sex: Male
  Weight: 109 kg

DRUGS (3)
  1. ASPIRIN [Suspect]
     Active Substance: ASPIRIN
     Indication: Cardiac disorder
     Dosage: FREQUENCY : DAILY;?
     Route: 048
     Dates: start: 20090501, end: 20250307
  2. CLOPIDOGREL BISULFATE [Suspect]
     Active Substance: CLOPIDOGREL BISULFATE
     Indication: Vascular device user
     Dosage: FREQUENCY : DAILY;?
     Route: 048
     Dates: start: 20200307
  3. MELOXICAM [Suspect]
     Active Substance: MELOXICAM

REACTIONS (4)
  - Haematemesis [None]
  - Melaena [None]
  - Haematochezia [None]
  - Red blood cell transfusion [None]

NARRATIVE: CASE EVENT DATE: 20250327
